FAERS Safety Report 4590066-0 (Version None)
Quarter: 2005Q1

REPORT INFORMATION
  Report Type: 
  Country: None (occurrence: None)
  Receive Date: 20050217
  Receipt Date: 20050204
  Transmission Date: 20050727
  Serious: Yes (Life-Threatening, Other)
  Sender: FDA-Public Use
  Company Number: 2005015989

PATIENT
  Age: 42 Year
  Sex: Female
  Weight: 116 kg

DRUGS (7)
  1. DEPO-PROVERA [Suspect]
     Indication: CONTRACEPTION
     Dosage: (150 MG, FIRST INJECTION), INTRAMUSCULAR
     Route: 030
     Dates: start: 20041108, end: 20041108
  2. ACETAMINOPHEN [Concomitant]
  3. CODEINE PHOSPHATE (CODEINE PHOSPHATE) [Concomitant]
  4. SALBUTAMOL (SALBUTAMOL) [Concomitant]
  5. DICLOFENAC SODIUM [Concomitant]
  6. MEBEVERINE (MEBEVERINE) [Concomitant]
  7. PROCHLORPERAZINE MALEATE [Concomitant]

REACTIONS (1)
  - MENINGIOMA BENIGN [None]
